FAERS Safety Report 7951831-2 (Version None)
Quarter: 2011Q4

REPORT INFORMATION
  Report Type: 
  Country: None (occurrence: None)
  Receive Date: 20111201
  Receipt Date: 20111128
  Transmission Date: 20120403
  Serious: Yes (Life-Threatening, Hospitalization)
  Sender: FDA-Public Use
  Company Number: GB-PFIZER INC-2011289573

PATIENT
  Age: 68 Year
  Sex: Male
  Weight: 88.9 kg

DRUGS (15)
  1. INSULIN GLARGINE [Concomitant]
     Indication: DIABETES MELLITUS
     Dosage: UNK
     Route: 048
     Dates: start: 20031029
  2. NOVORAPID [Concomitant]
     Indication: DIABETES MELLITUS
     Dosage: UNK
     Dates: start: 20030403
  3. GLYCERYL TRINITRATE [Concomitant]
     Dosage: UNK
     Route: 048
     Dates: start: 20080902
  4. DIPYRIDAMOLE [Concomitant]
     Indication: CEREBROVASCULAR ACCIDENT
     Dosage: UNK
     Dates: start: 20080909
  5. BECLOMETHASONE DIPROPIONATE [Concomitant]
     Dosage: UNK
     Route: 055
     Dates: start: 20080902
  6. DILTIAZEM [Concomitant]
     Dosage: UNK
     Route: 048
     Dates: start: 20080902
  7. SOMATROPIN [Suspect]
     Indication: GROWTH HORMONE DEFICIENCY
     Dosage: 0.3 MG, 1X/DAY
     Route: 058
     Dates: start: 20040205
  8. BISOPROLOL [Concomitant]
     Indication: ESSENTIAL HYPERTENSION
     Dosage: UNK
     Route: 048
     Dates: start: 20101207
  9. HYDROCORTISONE [Concomitant]
     Indication: ADRENAL INSUFFICIENCY
     Dosage: UNK
     Dates: start: 20090210
  10. WARFARIN [Concomitant]
     Dosage: UNK
     Route: 048
     Dates: start: 20080902
  11. RAMIPRIL [Concomitant]
     Indication: ESSENTIAL HYPERTENSION
     Dosage: UNK
     Route: 048
     Dates: start: 20101210
  12. ATORVASTATIN [Concomitant]
     Indication: HYPERCHOLESTEROLAEMIA
     Dosage: UNK
     Route: 048
     Dates: start: 20091006
  13. CITALOPRAM [Concomitant]
     Indication: DYSTHYMIC DISORDER
     Dosage: UNK
     Route: 048
     Dates: start: 20080902
  14. HYPROMELLOSE [Concomitant]
     Dosage: UNK
     Dates: start: 20080902
  15. OMACOR [Concomitant]
     Dosage: UNK
     Route: 048
     Dates: start: 20080902

REACTIONS (1)
  - ATRIAL FLUTTER [None]
